FAERS Safety Report 11622400 (Version 1)
Quarter: 2015Q4

REPORT INFORMATION
  Report Type: Spontaneous
  Country: US (occurrence: US)
  Receive Date: 20151013
  Receipt Date: 20151013
  Transmission Date: 20160304
  Serious: No
  Sender: FDA-Public Use
  Company Number: US-JNJFOC-20141219640

PATIENT
  Age: 90 Year
  Sex: Female
  Weight: 65.32 kg

DRUGS (3)
  1. TYLENOL EXTRA STRENGTH [Suspect]
     Active Substance: ACETAMINOPHEN
     Indication: ARTHRITIS
     Route: 048
     Dates: start: 20141221, end: 20141222
  2. METFORMIN [Concomitant]
     Active Substance: METFORMIN HYDROCHLORIDE
     Indication: DIABETES MELLITUS
     Dosage: 16 YEARS
     Route: 065
     Dates: start: 1998
  3. TYLENOL EXTRA STRENGTH [Suspect]
     Active Substance: ACETAMINOPHEN
     Indication: ARTHRITIS
     Route: 048

REACTIONS (4)
  - Gait disturbance [Recovering/Resolving]
  - Paraesthesia [Recovering/Resolving]
  - Drug ineffective [Unknown]
  - Abasia [Recovering/Resolving]

NARRATIVE: CASE EVENT DATE: 20141222
